FAERS Safety Report 6725415-8 (Version None)
Quarter: 2010Q2

REPORT INFORMATION
  Report Type: 
  Country: None (occurrence: None)
  Receive Date: 20100514
  Receipt Date: 20100501
  Transmission Date: 20101027
  Serious: Yes (Other)
  Sender: FDA-Public Use
  Company Number: CA-ELI_LILLY_AND_COMPANY-CA201005000228

PATIENT
  Age: 76 Year
  Sex: Female

DRUGS (3)
  1. FORTEO [Suspect]
     Indication: OSTEOPOROSIS
     Dosage: 20 UG, DAILY (1/D)
     Dates: start: 20081027
  2. OXYCONTIN [Concomitant]
     Dosage: 20 MG, 2/D
  3. ANTIHYPERTENSIVES [Concomitant]

REACTIONS (1)
  - FULL BLOOD COUNT DECREASED [None]
